FAERS Safety Report 14480755 (Version 12)
Quarter: 2019Q1

REPORT INFORMATION
  Report Type: Spontaneous
  Country: CA (occurrence: CA)
  Receive Date: 20180202
  Receipt Date: 20190306
  Transmission Date: 20190417
  Serious: Yes (Hospitalization, Other)
  Sender: FDA-Public Use
  Company Number: CA-CELLTRION INC.-2017CA016459

PATIENT

DRUGS (18)
  1. INFLECTRA [Suspect]
     Active Substance: INFLIXIMAB-DYYB
     Dosage: 300 MG EVERY 4 WEEKS;
     Route: 042
     Dates: start: 20181220
  2. IRON [Concomitant]
     Active Substance: IRON
     Indication: BONE DENSITY ABNORMAL
     Dosage: UNK
     Route: 042
  3. CEFTRIAXONE. [Concomitant]
     Active Substance: CEFTRIAXONE
     Dosage: 1 G
     Dates: end: 2017
  4. INFLECTRA [Suspect]
     Active Substance: INFLIXIMAB-DYYB
     Dosage: 300 MG, EVERY 8 WEEKS
     Route: 042
     Dates: start: 20180509, end: 20180509
  5. INFLECTRA [Suspect]
     Active Substance: INFLIXIMAB-DYYB
     Dosage: 300 MG, EVERY 4 WEEKS
     Route: 042
     Dates: start: 20190115
  6. DIPHENHYDRAMINE. [Concomitant]
     Active Substance: DIPHENHYDRAMINE
     Indication: PREMEDICATION
     Dosage: 50 MG
     Route: 048
  7. INFLECTRA [Suspect]
     Active Substance: INFLIXIMAB-DYYB
     Dosage: 300 MG EVERY 6 WEEKS;
     Route: 042
     Dates: start: 20180927
  8. INFLECTRA [Suspect]
     Active Substance: INFLIXIMAB-DYYB
     Indication: CROHN^S DISEASE
     Dosage: 300 MG, (EVERY 0, 2,6 WEEKS, THEN EVERY 8 WEEKS)
     Route: 042
     Dates: start: 20170202
  9. INFLECTRA [Suspect]
     Active Substance: INFLIXIMAB-DYYB
     Dosage: 300 MG, (EVERY 0, 2,6 WEEKS, THEN EVERY 8 WEEKS)
     Route: 042
     Dates: start: 20180321
  10. INFLECTRA [Suspect]
     Active Substance: INFLIXIMAB-DYYB
     Dosage: 300 MG EVERY 4 WEEKS;
     Route: 042
     Dates: start: 20181025
  11. INFLECTRA [Suspect]
     Active Substance: INFLIXIMAB-DYYB
     Dosage: 300 MG, EVERY 6 WEEKS
     Route: 042
     Dates: start: 20180815
  12. INFLECTRA [Suspect]
     Active Substance: INFLIXIMAB-DYYB
     Dosage: 300 MG, EVERY 4 WEEKS
     Route: 042
     Dates: start: 20190219
  13. HYDROCORTISONE. [Concomitant]
     Active Substance: HYDROCORTISONE
     Indication: PREMEDICATION
     Dosage: 100 MG
     Route: 042
  14. INFLECTRA [Suspect]
     Active Substance: INFLIXIMAB-DYYB
     Dosage: 300 MG, EVERY 6 WEEKS
     Route: 042
     Dates: start: 20180704
  15. INFLECTRA [Suspect]
     Active Substance: INFLIXIMAB-DYYB
     Dosage: 300 MG EVERY 6 WEEKS;
     Route: 042
     Dates: start: 20180927
  16. METRONIDAZOLE. [Concomitant]
     Active Substance: METRONIDAZOLE
     Dosage: 500 MG, TID
  17. PROLIA [Concomitant]
     Active Substance: DENOSUMAB
     Indication: BONE DENSITY ABNORMAL
     Dosage: UNK
     Route: 065
     Dates: start: 20170313
  18. METRONIDAZOLE. [Concomitant]
     Active Substance: METRONIDAZOLE
     Dosage: 500 MG, BID
     Dates: start: 20171120

REACTIONS (9)
  - Condition aggravated [Not Recovered/Not Resolved]
  - Anal fissure [Not Recovered/Not Resolved]
  - Blood pressure fluctuation [Not Recovered/Not Resolved]
  - Inappropriate schedule of product administration [Unknown]
  - Product use issue [Unknown]
  - Drug level below therapeutic [Unknown]
  - Anal abscess [Unknown]
  - Pyrexia [Unknown]
  - Staphylococcal infection [Unknown]

NARRATIVE: CASE EVENT DATE: 2017
